FAERS Safety Report 12242978 (Version 2)
Quarter: 2016Q2

REPORT INFORMATION
  Report Type: Spontaneous
  Country: JP (occurrence: JP)
  Receive Date: 20160406
  Receipt Date: 20160415
  Transmission Date: 20160815
  Serious: Yes (Death, Hospitalization)
  Sender: FDA-Public Use
  Company Number: JP-BAYER-2016-058750

PATIENT
  Age: 59 Year
  Sex: Male

DRUGS (3)
  1. LIPIODOL ULTRA-FLUIDE [Concomitant]
     Active Substance: ETHIODIZED OIL
     Dosage: DAILY DOSE 6 ML
     Route: 013
     Dates: start: 20160203, end: 20160203
  2. NEXAVAR [Suspect]
     Active Substance: SORAFENIB
     Indication: HEPATOCELLULAR CARCINOMA
     Dosage: 200 MG, BID
     Route: 048
     Dates: start: 20160301, end: 20160313
  3. EPIRUBICIN HYDROCHLORIDE. [Concomitant]
     Active Substance: EPIRUBICIN HYDROCHLORIDE
     Dosage: DAILY DOSE 60 MG
     Route: 013
     Dates: start: 20160203, end: 20160203

REACTIONS (4)
  - Pyrexia [None]
  - Dehydration [None]
  - Intestinal ischaemia [Fatal]
  - Altered state of consciousness [Fatal]

NARRATIVE: CASE EVENT DATE: 20160313
